FAERS Safety Report 21697113 (Version 1)
Quarter: 2022Q4

REPORT INFORMATION
  Report Type: Spontaneous
  Country: CH (occurrence: CH)
  Receive Date: 20221208
  Receipt Date: 20221208
  Transmission Date: 20230113
  Serious: Yes (Hospitalization)
  Sender: FDA-Public Use
  Company Number: None

PATIENT
  Age: 28 Year
  Sex: Female
  Weight: 65 kg

DRUGS (4)
  1. OCREVUS [Suspect]
     Active Substance: OCRELIZUMAB
     Indication: Multiple sclerosis
     Dosage: SEIT 2019 INFUSION ALLE 6 MONATE, DOSIERUNG NICHT ANGEGEBEN, AKTUELL PAUSE
     Route: 042
     Dates: start: 2019, end: 202204
  2. DEQUALINIUM CHLORIDE [Suspect]
     Active Substance: DEQUALINIUM CHLORIDE
     Indication: Vulvovaginal disorder
     Dosage: TAGLICH VAGINAL APPLIZIERT, DOSIERUNG NICHT ANGEGEBEN
     Route: 061
     Dates: start: 202204, end: 202205
  3. PREDNISONE [Concomitant]
     Active Substance: PREDNISONE
     Indication: Vulvovaginal disorder
     Dosage: DOSIERUNG UND PRODUKT NICHT BEKANNT
     Route: 048
     Dates: start: 202205, end: 202206
  4. CLOBETASOL [Concomitant]
     Active Substance: CLOBETASOL
     Indication: Vulvovaginal disorder
     Dosage: TAGLICH VULVAR APPLIZIERT, KEINE GENAUERE DOSISANGABE
     Route: 061
     Dates: start: 202204, end: 202205

REACTIONS (1)
  - Vulval ulceration [Recovering/Resolving]

NARRATIVE: CASE EVENT DATE: 20220509
